FAERS Safety Report 4593838-1 (Version None)
Quarter: 2005Q1

REPORT INFORMATION
  Report Type: 
  Country: None (occurrence: None)
  Receive Date: 20050301
  Receipt Date: 20041005
  Transmission Date: 20050727
  Serious: Yes (Other)
  Sender: FDA-Public Use
  Company Number: PHBS2004BE13375

PATIENT
  Age: 61 Year
  Sex: Male

DRUGS (8)
  1. GLEEVEC [Suspect]
     Indication: GASTROINTESTINAL STROMAL TUMOUR
     Dosage: 300 MG/D
     Route: 048
     Dates: start: 20041201, end: 20041221
  2. GLEEVEC [Suspect]
     Dosage: 400 MG/D
     Route: 048
     Dates: start: 20041222, end: 20050106
  3. GLEEVEC [Suspect]
     Dosage: 600 MG/D
     Route: 048
     Dates: start: 20050107
  4. GLEEVEC [Suspect]
     Dosage: 300 MG/D
     Route: 048
     Dates: start: 20040401
  5. GLEEVEC [Suspect]
     Dosage: 200 MG/D
     Route: 048
     Dates: end: 20041201
  6. GLEEVEC [Suspect]
     Dosage: 400 MG/D
     Route: 048
     Dates: start: 20031119, end: 20040201
  7. GLEEVEC [Suspect]
     Dosage: 200 MG/D
     Route: 048
     Dates: start: 20040201, end: 20040401
  8. ALCOHOL [Suspect]

REACTIONS (9)
  - ALCOHOL INTERACTION [None]
  - ANOREXIA [None]
  - DRY SKIN [None]
  - ERYTHEMA [None]
  - FACE OEDEMA [None]
  - HAEMORRHAGE [None]
  - MALIGNANT NEOPLASM PROGRESSION [None]
  - PRURITUS [None]
  - RASH [None]
